FAERS Safety Report 5531509-5 (Version None)
Quarter: 2007Q4

REPORT INFORMATION
  Report Type: 
  Country: None (occurrence: None)
  Receive Date: 20071128
  Receipt Date: 20071128
  Transmission Date: 20080405
  Serious: No
  Sender: FDA-Public Use
  Company Number: None

PATIENT
  Age: 59 Year
  Sex: Male
  Weight: 90.7194 kg

DRUGS (1)
  1. VARENICLINE 1MG BID UNK [Suspect]
     Indication: SMOKING CESSATION THERAPY
     Dosage: STARTER PAC BID PO; 2-3 WEEKS
     Route: 048
     Dates: start: 20070701, end: 20070801

REACTIONS (4)
  - AGGRESSION [None]
  - ALCOHOL USE [None]
  - AMNESIA [None]
  - MARITAL PROBLEM [None]
